FAERS Safety Report 4936768-5 (Version None)
Quarter: 2006Q1

REPORT INFORMATION
  Report Type: 
  Country: None (occurrence: None)
  Receive Date: 20060307
  Receipt Date: 20051019
  Transmission Date: 20060701
  Serious: Yes (Hospitalization)
  Sender: FDA-Public Use
  Company Number: US-MERCK-0510USA08252

PATIENT
  Age: 56 Year
  Sex: Female
  Weight: 105 kg

DRUGS (23)
  1. VIOXX [Suspect]
     Indication: OSTEOARTHRITIS
     Route: 048
  2. VIOXX [Suspect]
     Route: 065
     Dates: start: 19990701, end: 20040701
  3. ASPIRIN [Concomitant]
     Route: 065
     Dates: start: 19970701
  4. NEURONTIN [Concomitant]
     Route: 065
     Dates: start: 19990101
  5. EFFEXOR [Concomitant]
     Route: 065
  6. ZOLOFT [Concomitant]
     Route: 065
  7. ULTRAM [Concomitant]
     Route: 065
  8. HYDROCHLOROTHIAZIDE [Concomitant]
     Route: 065
  9. ALTACE [Concomitant]
     Route: 065
  10. PREMARIN [Concomitant]
     Route: 065
     Dates: start: 19980101
  11. XANAX [Concomitant]
     Route: 065
  12. MONOPRIL [Concomitant]
     Route: 065
  13. METOPROLOL [Concomitant]
     Route: 065
  14. ELAVIL [Concomitant]
     Route: 065
     Dates: start: 19990101
  15. DETROL LA [Concomitant]
     Route: 065
  16. LIPITOR [Concomitant]
     Route: 065
  17. ALBUTEROL [Concomitant]
     Route: 065
  18. NITROGLYCERIN [Concomitant]
     Indication: CHEST PAIN
     Route: 065
     Dates: start: 20031101, end: 20050305
  19. PROTONIX [Concomitant]
     Route: 065
  20. DULCOLAX [Concomitant]
     Route: 065
  21. NATURAL BALANCE COLON CLENZ [Concomitant]
     Route: 065
  22. OXYBUTIN [Concomitant]
     Route: 065
  23. NAPROXEN [Concomitant]
     Route: 065
     Dates: start: 19980101, end: 20041130

REACTIONS (7)
  - CONSTIPATION [None]
  - DEEP VEIN THROMBOSIS [None]
  - DIVERTICULITIS [None]
  - GASTROOESOPHAGEAL REFLUX DISEASE [None]
  - INJURY [None]
  - PRESCRIBED OVERDOSE [None]
  - THROMBOSIS [None]
